FAERS Safety Report 7153609-9 (Version None)
Quarter: 2010Q4

REPORT INFORMATION
  Report Type: 
  Country: None (occurrence: None)
  Receive Date: 20101213
  Receipt Date: 20101201
  Transmission Date: 20110411
  Serious: Yes (Life-Threatening, Hospitalization)
  Sender: FDA-Public Use
  Company Number: DE-BRISTOL-MYERS SQUIBB COMPANY-15237894

PATIENT
  Age: 80 Year
  Sex: Male

DRUGS (11)
  1. APIXABAN [Suspect]
     Indication: THROMBOSIS PROPHYLAXIS
     Dosage: INTERRUPTED ON 12AUG10, RESTARTED AND CONTD THROUGH 02SEP2010. NO OF COURSE 2
     Route: 048
     Dates: start: 20100107
  2. WARFARIN SODIUM [Suspect]
     Indication: THROMBOSIS PROPHYLAXIS
     Dosage: INTERRUPTED ON 12AUG10; RESTARTED 4MG AND CONTD THROUGH 02SEP2010. NO OF COURSE 1
     Route: 048
     Dates: start: 20100107
  3. PLACEBO [Suspect]
     Indication: THROMBOSIS PROPHYLAXIS
     Dosage: INTERRUPTED ON 12AUG10;RESTARTED AND CONTD THROUGH 02SEP2010.
     Route: 048
     Dates: start: 20100107
  4. METFORMIN HCL [Concomitant]
  5. LEVOTHYROXINE SODIUM [Concomitant]
  6. XIPAMIDE [Concomitant]
  7. SIMVASTATIN [Concomitant]
  8. BISOPROLOL [Concomitant]
  9. IPRATROPIUM BROMIDE [Concomitant]
  10. FENOTEROL [Concomitant]
  11. THIAZIDE [Concomitant]

REACTIONS (1)
  - AORTIC ANEURYSM RUPTURE [None]
